FAERS Safety Report 20480395 (Version 1)
Quarter: 2022Q1

REPORT INFORMATION
  Report Type: Spontaneous
  Country: US (occurrence: None)
  Receive Date: 20220216
  Receipt Date: 20220216
  Transmission Date: 20220424
  Serious: No
  Sender: FDA-Public Use
  Company Number: None

PATIENT
  Age: 70 Year
  Sex: Female

DRUGS (2)
  1. AMBRISENTAN [Suspect]
     Active Substance: AMBRISENTAN
     Dosage: FREQUENCY : DAILY;?
     Route: 048
  2. AMBRISENTAN [Concomitant]
     Active Substance: AMBRISENTAN

REACTIONS (7)
  - COVID-19 [None]
  - Fatigue [None]
  - Dyspnoea [None]
  - Oedema peripheral [None]
  - Brain natriuretic peptide increased [None]
  - Therapy change [None]
  - Condition aggravated [None]

NARRATIVE: CASE EVENT DATE: 20220215
